FAERS Safety Report 4681991-0 (Version None)
Quarter: 2005Q2

REPORT INFORMATION
  Report Type: 
  Country: None (occurrence: None)
  Receive Date: 20050526
  Receipt Date: 20050311
  Transmission Date: 20051028
  Serious: Yes (Other)
  Sender: FDA-Public Use
  Company Number: US-JNJFOC-20050106582

PATIENT
  Age: 36 Year
  Sex: Male

DRUGS (7)
  1. RISPERDAL [Suspect]
     Indication: SCHIZOPHRENIA
     Dosage: 25 MG, INTRAMUSCULAR
     Route: 030
     Dates: start: 20040101, end: 20050208
  2. COLACE ( ) DOCUSATE SODIUM [Concomitant]
  3. VITAMIN C ( ) ASCORBIC ACID [Concomitant]
  4. PROPRANOLOL [Concomitant]
  5. LEVOXYL (LEVOTHYROXINE SODIUM) TABLETS [Concomitant]
  6. TRAZODONE (TRAZODONE) TABLETS [Concomitant]
  7. ABILIFY [Concomitant]

REACTIONS (3)
  - BLOOD CHOLESTEROL INCREASED [None]
  - BLOOD TRIGLYCERIDES INCREASED [None]
  - DIABETES MELLITUS [None]
